FAERS Safety Report 9419667 (Version 2)
Quarter: 2013Q3

REPORT INFORMATION
  Report Type: Spontaneous
  Country: US (occurrence: US)
  Receive Date: 20130725
  Receipt Date: 20130808
  Transmission Date: 20140515
  Serious: Yes (Death, Other)
  Sender: FDA-Public Use
  Company Number: PHEH2013US015712

PATIENT
  Age: 68 Year
  Sex: Female

DRUGS (2)
  1. AFINITOR [Suspect]
     Dosage: 10 MG, QD
     Route: 048
     Dates: start: 20121003, end: 20121107
  2. AFINITOR [Suspect]
     Dosage: 7.5 MG
     Route: 048
     Dates: start: 20121112, end: 20121121

REACTIONS (6)
  - Malignant neoplasm progression [Fatal]
  - Breast cancer metastatic [Fatal]
  - Pulmonary toxicity [Unknown]
  - Nausea [Unknown]
  - Fatigue [Unknown]
  - Drug intolerance [Unknown]
